FAERS Safety Report 21977533 (Version 1)
Quarter: 2023Q1

REPORT INFORMATION
  Report Type: Report from Study
  Country: AR (occurrence: AR)
  Receive Date: 20230210
  Receipt Date: 20230210
  Transmission Date: 20230417
  Serious: Yes (Other)
  Sender: FDA-Public Use
  Company Number: AR-JNJFOC-20230208589

PATIENT
  Age: 9 Decade
  Sex: Female
  Weight: 60 kg

DRUGS (2)
  1. SIMPONI [Suspect]
     Active Substance: GOLIMUMAB
     Indication: Rheumatoid arthritis
     Route: 058
     Dates: start: 20200323
  2. ALTRADAY [Concomitant]
     Indication: Product used for unknown indication

REACTIONS (4)
  - Localised infection [Recovering/Resolving]
  - Gastrointestinal disorder [Recovering/Resolving]
  - Urinary tract disorder [Recovering/Resolving]
  - Blood pressure abnormal [Unknown]
